FAERS Safety Report 21975995 (Version 2)
Quarter: 2023Q1

REPORT INFORMATION
  Report Type: Spontaneous
  Country: BR (occurrence: BR)
  Receive Date: 20230210
  Receipt Date: 20230321
  Transmission Date: 20230418
  Serious: Yes (Other)
  Sender: FDA-Public Use
  Company Number: BR-NOVOPROD-1019490

PATIENT
  Age: 13 Year
  Sex: Male

DRUGS (1)
  1. FIASP [Suspect]
     Active Substance: INSULIN ASPART
     Indication: Type 1 diabetes mellitus
     Dosage: UNK, MULTIPLE DOSES THROUGHOUT THE DAY, EVERY DAY

REACTIONS (5)
  - Hyperglycaemia [Recovered/Resolved]
  - Product dose omission in error [Unknown]
  - Device occlusion [Unknown]
  - Intentional device misuse [Unknown]
  - Prescription drug used without a prescription [Unknown]

NARRATIVE: CASE EVENT DATE: 20230125
